FAERS Safety Report 6120586-9 (Version None)
Quarter: 2009Q1

REPORT INFORMATION
  Report Type: 
  Country: None (occurrence: None)
  Receive Date: 20090312
  Receipt Date: 20090312
  Transmission Date: 20090719
  Serious: No
  Sender: FDA-Public Use
  Company Number: None

PATIENT
  Age: 52 Year
  Sex: Female
  Weight: 86.1834 kg

DRUGS (2)
  1. SKELAXIN [Suspect]
     Indication: BACK PAIN
     Dosage: 1 TALBET BID PO
     Route: 048
     Dates: start: 20090206, end: 20090306
  2. SKELAXIN [Suspect]
     Indication: PAIN IN EXTREMITY
     Dosage: 1 TALBET BID PO
     Route: 048
     Dates: start: 20090206, end: 20090306

REACTIONS (2)
  - CHEST DISCOMFORT [None]
  - CHEST PAIN [None]
